FAERS Safety Report 8498334-7 (Version None)
Quarter: 2012Q3

REPORT INFORMATION
  Report Type: 
  Country: None (occurrence: None)
  Receive Date: 20120709
  Receipt Date: 20120622
  Transmission Date: 20120928
  Serious: No
  Sender: FDA-Public Use
  Company Number: US-AMGEN-USASP2010001436

PATIENT
  Age: 57 Year
  Sex: Female
  Weight: 65.76 kg

DRUGS (8)
  1. FOLIC ACID [Concomitant]
     Dosage: 1 MG, QD
  2. PLAVIX [Concomitant]
     Dosage: 75 MG, QD
  3. METHOTREXATE [Concomitant]
     Dosage: 15 MG, QWK
  4. SYNTHROID [Concomitant]
     Dosage: 100 MUG, QD
  5. ASPIRIN [Concomitant]
     Dosage: 81 MG, QD
  6. VITAMIN D [Concomitant]
  7. ENBREL [Suspect]
     Indication: RHEUMATOID ARTHRITIS
     Dosage: 50 MG, QWK
     Route: 058
     Dates: start: 20080101
  8. METOPROLOL TARTRATE [Concomitant]
     Dosage: 25 MG, QD

REACTIONS (6)
  - HEADACHE [None]
  - FATIGUE [None]
  - ARTHRALGIA [None]
  - PYREXIA [None]
  - NASOPHARYNGITIS [None]
  - INJECTION SITE PAIN [None]
